FAERS Safety Report 15015291 (Version 1)
Quarter: 2018Q2

REPORT INFORMATION
  Report Type: Spontaneous
  Country: GB (occurrence: GB)
  Receive Date: 20180615
  Receipt Date: 20180615
  Transmission Date: 20180711
  Serious: Yes (Hospitalization)
  Sender: FDA-Public Use
  Company Number: GB-TEVA-2018-GB-907975

PATIENT
  Age: 32 Year
  Sex: Female

DRUGS (1)
  1. MYCOPHENOLATE MOFETIL. [Suspect]
     Active Substance: MYCOPHENOLATE MOFETIL
     Indication: PSORIASIS
     Dosage: 1000 MILLIGRAM DAILY;
     Route: 048
     Dates: start: 20140406

REACTIONS (2)
  - Clonic convulsion [Recovered/Resolved]
  - Convulsive threshold lowered [Unknown]

NARRATIVE: CASE EVENT DATE: 20180419
